FAERS Safety Report 6394656-4 (Version None)
Quarter: 2009Q4

REPORT INFORMATION
  Report Type: 
  Country: None (occurrence: None)
  Receive Date: 20091009
  Receipt Date: 20091001
  Transmission Date: 20100525
  Serious: Yes (Death, Hospitalization)
  Sender: FDA-Public Use
  Company Number: US-JNJFOC-20090608710

PATIENT
  Sex: Female
  Weight: 94.8 kg

DRUGS (2)
  1. ORTHO EVRA [Suspect]
     Indication: CONTRACEPTION
     Route: 062
  2. ZITHROMAX [Concomitant]

REACTIONS (1)
  - PULMONARY ARTERY THROMBOSIS [None]
